FAERS Safety Report 12941469 (Version 1)
Quarter: 2016Q4

REPORT INFORMATION
  Report Type: Spontaneous
  Country: US (occurrence: US)
  Receive Date: 20161115
  Receipt Date: 20161115
  Transmission Date: 20170207
  Serious: Yes (Hospitalization)
  Sender: FDA-Public Use
  Company Number: None

PATIENT
  Age: 18 Year
  Sex: Female
  Weight: 49.7 kg

DRUGS (12)
  1. DIFFERIN [Concomitant]
     Active Substance: ADAPALENE
  2. LORATADINE/PSEUDO [Concomitant]
  3. PHENERGAN [Suspect]
     Active Substance: PROMETHAZINE HYDROCHLORIDE
     Dosage: CHRONIC
  4. RESTORIL [Suspect]
     Active Substance: TEMAZEPAM
     Indication: INSOMNIA
     Dosage: 15 MG NIGHTLY PRN PO CHRONIC
     Route: 048
  5. ULTRAM [Suspect]
     Active Substance: TRAMADOL HYDROCHLORIDE
     Dosage: CHRONIC
  6. MELATONIN [Concomitant]
     Active Substance: MELATONIN
  7. TEMAZEPAM. [Suspect]
     Active Substance: TEMAZEPAM
     Dosage: CHRONIC
  8. HYDROCODONE [Suspect]
     Active Substance: HYDROCODONE
     Dosage: CHRONIC
  9. IMODIUM [Concomitant]
     Active Substance: LOPERAMIDE HYDROCHLORIDE
  10. SEROQUEL [Suspect]
     Active Substance: QUETIAPINE FUMARATE
     Dosage: 75MG NIGHTLY PO CHRONIC
     Route: 048
  11. DESMOPRESSIN [Concomitant]
     Active Substance: DESMOPRESSIN
  12. PRILOSEC [Concomitant]
     Active Substance: OMEPRAZOLE MAGNESIUM

REACTIONS (3)
  - Encephalopathy [None]
  - Accidental overdose [None]
  - Drug interaction [None]

NARRATIVE: CASE EVENT DATE: 20151108
